FAERS Safety Report 16428952 (Version 1)
Quarter: 2019Q2

REPORT INFORMATION
  Report Type: Report from Study
  Country: IE (occurrence: IE)
  Receive Date: 20190613
  Receipt Date: 20190613
  Transmission Date: 20190711
  Serious: Yes (Death, Other)
  Sender: FDA-Public Use
  Company Number: IE-BAXTER-2019BAX010579

PATIENT
  Age: 57 Year
  Sex: Male

DRUGS (21)
  1. GLUCOSE INTRAVENOUS INFUSION BP 50% W/V [Suspect]
     Active Substance: DEXTROSE
     Indication: PARENTERAL NUTRITION
     Dosage: LIPID BAG
     Route: 042
     Dates: start: 201902, end: 20190601
  2. GLUCOSE INTRAVENOUS INFUSION BP 50% W/V [Suspect]
     Active Substance: DEXTROSE
     Dosage: NON LIPID BAG
     Route: 042
     Dates: start: 201902, end: 20190601
  3. SODIUM CHLORIDE. [Suspect]
     Active Substance: SODIUM CHLORIDE
     Dosage: NON LIPID BAG
     Route: 042
     Dates: start: 201902, end: 20190601
  4. MAGNESIUM SULPHATE [Suspect]
     Active Substance: MAGNESIUM SULFATE
     Indication: PARENTERAL NUTRITION
     Dosage: LIPID BAG
     Route: 042
     Dates: start: 201902, end: 20190601
  5. WATER FOR TPN FORMULATIONS [Suspect]
     Active Substance: WATER
     Dosage: NON LIPID BAG
     Route: 042
     Dates: start: 201902, end: 20190601
  6. CALCIUM CHLORIDE. [Suspect]
     Active Substance: CALCIUM CHLORIDE
     Indication: PARENTERAL NUTRITION
     Dosage: LIPID BAG
     Route: 042
     Dates: start: 201902, end: 20190601
  7. SODIUM CHLORIDE. [Suspect]
     Active Substance: SODIUM CHLORIDE
     Indication: PARENTERAL NUTRITION
     Dosage: LIPID BAG
     Route: 042
     Dates: start: 201902, end: 20190601
  8. CERNEVIT [Suspect]
     Active Substance: VITAMINS
     Dosage: NON LIPID BAG
     Route: 042
     Dates: start: 201902, end: 20190601
  9. POTASSIUM CHLORIDE. [Suspect]
     Active Substance: POTASSIUM CHLORIDE
     Indication: PARENTERAL NUTRITION
     Dosage: LIPID BAG
     Route: 042
     Dates: start: 201902, end: 20190601
  10. CALCIUM CHLORIDE. [Suspect]
     Active Substance: CALCIUM CHLORIDE
     Dosage: NON LIPID BAG
     Route: 042
     Dates: start: 201902, end: 20190601
  11. SODIUM GLYCEROPHOSPHATE [Suspect]
     Active Substance: SODIUM GLYCEROPHOSPHATE
     Dosage: NON LIPID BAG
     Route: 042
     Dates: start: 201902, end: 20190601
  12. WATER FOR INJECTION [Suspect]
     Active Substance: WATER
     Dosage: NON LIPID BAG
     Route: 042
     Dates: start: 201902, end: 20190601
  13. CERNEVIT [Suspect]
     Active Substance: VITAMINS
     Indication: PARENTERAL NUTRITION
     Dosage: LIPID BAG
     Route: 042
     Dates: start: 201902, end: 20190601
  14. WATER FOR TPN FORMULATIONS [Suspect]
     Active Substance: WATER
     Indication: PARENTERAL NUTRITION
     Dosage: LIPID BAG
     Route: 042
     Dates: start: 201902, end: 20190601
  15. MAGNESIUM SULPHATE [Suspect]
     Active Substance: MAGNESIUM SULFATE
     Dosage: NON LIPID BAG
     Route: 042
     Dates: start: 201902, end: 20190601
  16. SYNTHAMIN [Suspect]
     Active Substance: AMINO ACIDS
     Indication: PARENTERAL NUTRITION
     Dosage: LIPID BAG
     Route: 042
     Dates: start: 201902, end: 20190601
  17. POTASSIUM CHLORIDE. [Suspect]
     Active Substance: POTASSIUM CHLORIDE
     Dosage: NON LIPID BAG
     Route: 042
     Dates: start: 201902, end: 20190601
  18. SODIUM GLYCEROPHOSPHATE [Suspect]
     Active Substance: SODIUM GLYCEROPHOSPHATE
     Indication: PARENTERAL NUTRITION
     Dosage: LIPID BAG
     Route: 042
     Dates: start: 201902, end: 20190601
  19. WATER FOR INJECTION [Suspect]
     Active Substance: WATER
     Indication: PARENTERAL NUTRITION
     Dosage: LIPID BAG
     Route: 042
     Dates: start: 201902, end: 20190601
  20. SYNTHAMIN [Suspect]
     Active Substance: AMINO ACIDS
     Dosage: NON LIPID BAG
     Route: 042
     Dates: start: 201902, end: 20190601
  21. CLINOLEIC 20% (BAG) [Suspect]
     Active Substance: OLIVE OIL\SOYBEAN OIL
     Indication: PARENTERAL NUTRITION
     Dosage: LIPID BAG
     Route: 042
     Dates: start: 201902, end: 20190601

REACTIONS (2)
  - Death [Fatal]
  - Renal impairment [Unknown]

NARRATIVE: CASE EVENT DATE: 20190602
